FAERS Safety Report 23635098 (Version 1)
Quarter: 2024Q1

REPORT INFORMATION
  Report Type: Spontaneous
  Country: ES (occurrence: ES)
  Receive Date: 20240315
  Receipt Date: 20240315
  Transmission Date: 20240410
  Serious: Yes (Hospitalization, Other)
  Sender: FDA-Public Use
  Company Number: None

PATIENT
  Age: 65 Year
  Sex: Male

DRUGS (3)
  1. AFLIBERCEPT [Interacting]
     Active Substance: AFLIBERCEPT
     Indication: Adenocarcinoma of colon
     Dosage: UNK UNK, QOW
     Route: 042
     Dates: start: 20230214, end: 20230428
  2. FLUOROURACIL [Interacting]
     Active Substance: FLUOROURACIL
     Indication: Adenocarcinoma of colon
     Dosage: 200 MG/M2, QOW
     Route: 042
     Dates: start: 20230214, end: 20230428
  3. IRINOTECAN HYDROCHLORIDE [Interacting]
     Active Substance: IRINOTECAN HYDROCHLORIDE
     Indication: Adenocarcinoma of colon
     Dosage: 120 MG/M2, QOW
     Route: 042
     Dates: start: 20230214, end: 20230428

REACTIONS (2)
  - Pancytopenia [Recovered/Resolved]
  - Diarrhoea [Recovered/Resolved]

NARRATIVE: CASE EVENT DATE: 20230413
